FAERS Safety Report 4879626-7 (Version None)
Quarter: 2006Q1

REPORT INFORMATION
  Report Type: 
  Country: None (occurrence: None)
  Receive Date: 20060111
  Receipt Date: 20060102
  Transmission Date: 20060701
  Serious: Yes (Other)
  Sender: FDA-Public Use
  Company Number: SE-2005-026803

PATIENT
  Age: 43 Year
  Sex: Female
  Weight: 63 kg

DRUGS (2)
  1. LEVONORGESTREL [Suspect]
     Indication: INTRA-UTERINE CONTRACEPTIVE DEVICE
     Dosage: 20 UG/DAY, CONT, INTRA-UTERINE
     Route: 015
     Dates: start: 19951012
  2. VOLTAREN [Concomitant]

REACTIONS (4)
  - BREAST TENDERNESS [None]
  - FATIGUE [None]
  - GALACTORRHOEA [None]
  - PITUITARY TUMOUR BENIGN [None]
